FAERS Safety Report 14371664 (Version 1)
Quarter: 2018Q1

REPORT INFORMATION
  Report Type: Spontaneous
  Country: US (occurrence: US)
  Receive Date: 20180110
  Receipt Date: 20180110
  Transmission Date: 20180509
  Serious: Yes (Other)
  Sender: FDA-Public Use
  Company Number: US-GLAXOSMITHKLINE-US2018001439

PATIENT
  Sex: Male

DRUGS (1)
  1. NICORETTE [Suspect]
     Active Substance: NICOTINE
     Indication: SMOKING CESSATION THERAPY
     Dosage: 4 MG, UNK (1 PIECE/LOZENGE PER 4-8 HOURS)

REACTIONS (4)
  - Dyspepsia [Unknown]
  - Insomnia [Unknown]
  - Seizure [Unknown]
  - Pain [Unknown]
